FAERS Safety Report 6068457-0 (Version None)
Quarter: 2009Q1

REPORT INFORMATION
  Report Type: 
  Country: None (occurrence: None)
  Receive Date: 20090206
  Receipt Date: 20090126
  Transmission Date: 20090719
  Serious: Yes (Hospitalization, Other)
  Sender: FDA-Public Use
  Company Number: FR-PFIZER INC-2009161770

PATIENT

DRUGS (1)
  1. SUNITINIB MALATE [Suspect]
     Route: 048
     Dates: start: 20081205, end: 20081230

REACTIONS (1)
  - GENERAL PHYSICAL HEALTH DETERIORATION [None]
